FAERS Safety Report 25312215 (Version 1)
Quarter: 2025Q2

REPORT INFORMATION
  Report Type: Spontaneous
  Country: CZ (occurrence: CZ)
  Receive Date: 20250510
  Receipt Date: 20250510
  Transmission Date: 20250716
  Serious: Yes (Life-Threatening, Hospitalization, Other)
  Sender: NOVO NORDISK
  Company Number: None

PATIENT
  Sex: Female

DRUGS (1)
  1. SAXENDA [Suspect]
     Active Substance: LIRAGLUTIDE
     Indication: Obesity
     Route: 058
     Dates: start: 20250225, end: 20250402

REACTIONS (1)
  - Pancreatitis acute [Recovering/Resolving]
